FAERS Safety Report 14376231 (Version 3)
Quarter: 2019Q1

REPORT INFORMATION
  Report Type: Spontaneous
  Country: US (occurrence: US)
  Receive Date: 20180111
  Receipt Date: 20190313
  Transmission Date: 20190417
  Serious: Yes (Hospitalization, Other)
  Sender: FDA-Public Use
  Company Number: US-DSJP-DSU-2017-138604

PATIENT

DRUGS (1)
  1. BENICAR [Suspect]
     Active Substance: OLMESARTAN MEDOXOMIL
     Indication: PRODUCT USED FOR UNKNOWN INDICATION
     Dosage: 20 MG, QD
     Route: 048
     Dates: start: 20050508, end: 20170821

REACTIONS (8)
  - Diverticulitis [Recovering/Resolving]
  - Diverticulum intestinal [Not Recovered/Not Resolved]
  - Haemorrhoids [Unknown]
  - Rectal haemorrhage [Unknown]
  - Gastrooesophageal reflux disease [Unknown]
  - Sprue-like enteropathy [Recovered/Resolved]
  - Stomal hernia [Unknown]
  - Cholelithiasis [Recovered/Resolved]

NARRATIVE: CASE EVENT DATE: 20050526
